FAERS Safety Report 7506831-3 (Version None)
Quarter: 2011Q2

REPORT INFORMATION
  Report Type: 
  Country: None (occurrence: None)
  Receive Date: 20110526
  Receipt Date: 20101125
  Transmission Date: 20111010
  Serious: Yes (Hospitalization)
  Sender: FDA-Public Use
  Company Number: B0686794A

PATIENT
  Sex: Female

DRUGS (3)
  1. PAXIL [Suspect]
     Indication: ANXIETY DISORDER
     Dosage: 20MG PER DAY
     Route: 048
     Dates: start: 20040101, end: 20040601
  2. PAXIL [Suspect]
     Indication: APPETITE DISORDER
     Dosage: 20MG PER DAY
     Route: 048
     Dates: start: 20041001, end: 20061207
  3. ZOLPIDEM [Concomitant]
     Indication: INSOMNIA
     Dosage: 5MG PER DAY
     Route: 065

REACTIONS (12)
  - SEROTONIN SYNDROME [None]
  - MYOCLONUS [None]
  - LACERATION [None]
  - IRRITABILITY [None]
  - DYSGEUSIA [None]
  - LOWER LIMB FRACTURE [None]
  - HYPOAESTHESIA [None]
  - GLOSSODYNIA [None]
  - DEPRESSION [None]
  - PARAESTHESIA ORAL [None]
  - DRUG WITHDRAWAL SYNDROME [None]
  - FALL [None]
